FAERS Safety Report 8039078-5 (Version None)
Quarter: 2012Q1

REPORT INFORMATION
  Report Type: 
  Country: None (occurrence: None)
  Receive Date: 20120111
  Receipt Date: 20111212
  Transmission Date: 20120608
  Serious: No
  Sender: FDA-Public Use
  Company Number: US-AMGEN-USASP2011066466

PATIENT
  Age: 55 Year
  Sex: Female

DRUGS (1)
  1. ENBREL [Suspect]
     Indication: ARTHRITIS
     Dosage: 50 MG, QWK
     Dates: start: 20101122

REACTIONS (8)
  - HYPERSENSITIVITY [None]
  - NASOPHARYNGITIS [None]
  - PSORIASIS [None]
  - RHINORRHOEA [None]
  - THROAT IRRITATION [None]
  - PAIN IN EXTREMITY [None]
  - EYE SWELLING [None]
  - ARTHRITIS [None]
